FAERS Safety Report 4343681-3 (Version None)
Quarter: 2004Q2

REPORT INFORMATION
  Report Type: 
  Country: None (occurrence: None)
  Receive Date: 20040422
  Receipt Date: 20040316
  Transmission Date: 20050107
  Serious: Yes (Hospitalization)
  Sender: FDA-Public Use
  Company Number: 200410946JP

PATIENT
  Sex: Male
  Weight: 48 kg

DRUGS (3)
  1. LASIX [Suspect]
     Route: 048
     Dates: start: 20020101, end: 20040309
  2. VITAMIN D AND ANALOGUES [Concomitant]
     Route: 048
     Dates: start: 20020101
  3. NOZLEN [Concomitant]
     Route: 048
     Dates: start: 20020101

REACTIONS (1)
  - PEMPHIGOID [None]
